FAERS Safety Report 8920601 (Version 8)
Quarter: 2015Q2

REPORT INFORMATION
  Report Type: Spontaneous
  Country: US (occurrence: US)
  Receive Date: 20121121
  Receipt Date: 20150515
  Transmission Date: 20150821
  Serious: Yes (Death, Hospitalization, Disabling, Other)
  Sender: FDA-Public Use
  Company Number: US-009507513-1211USA008129

PATIENT
  Sex: Female

DRUGS (4)
  1. FOSAMAX [Suspect]
     Active Substance: ALENDRONATE SODIUM
     Indication: OSTEOPOROSIS
     Dosage: UNK
     Route: 048
     Dates: start: 1995
  2. FOSAMAX [Suspect]
     Active Substance: ALENDRONATE SODIUM
     Dosage: 70 MG, QW
     Route: 048
     Dates: end: 20080109
  3. ALENDRONATE SODIUM. [Suspect]
     Active Substance: ALENDRONATE SODIUM
     Indication: OSTEOPOROSIS
     Dosage: 70 MG, QW
     Route: 048
     Dates: start: 20080227, end: 20091208
  4. FOSAMAX [Suspect]
     Active Substance: ALENDRONATE SODIUM
     Dosage: 35 MG, QW
     Route: 048

REACTIONS (47)
  - Cranial nerve paralysis [Unknown]
  - Transient ischaemic attack [Recovered/Resolved]
  - Cerebrovascular accident [Unknown]
  - Surgery [Unknown]
  - Blood cholesterol increased [Unknown]
  - Coronary artery disease [Unknown]
  - Depression [Unknown]
  - Haemoglobin decreased [Unknown]
  - Fall [Unknown]
  - Spinal osteoarthritis [Unknown]
  - Abdominal operation [Unknown]
  - Hip surgery [Unknown]
  - Hyperparathyroidism [Unknown]
  - Vascular dementia [Unknown]
  - Peripheral vascular disorder [Unknown]
  - Type 2 diabetes mellitus [Unknown]
  - Low turnover osteopathy [Not Recovered/Not Resolved]
  - Hip surgery [Unknown]
  - Joint dislocation reduction [Unknown]
  - Dementia Alzheimer^s type [Fatal]
  - Arthralgia [Not Recovered/Not Resolved]
  - Knee arthroplasty [Unknown]
  - Device dislocation [Unknown]
  - Hip arthroplasty [Unknown]
  - Hip arthroplasty [Unknown]
  - Knee operation [Unknown]
  - Hyperlipidaemia [Unknown]
  - Joint dislocation [Unknown]
  - Chronic obstructive pulmonary disease [Unknown]
  - Osteoporosis [Not Recovered/Not Resolved]
  - Oedema peripheral [Unknown]
  - Osteoarthritis [Unknown]
  - Hypertensive heart disease [Unknown]
  - Compression fracture [Unknown]
  - Electrolyte imbalance [Unknown]
  - Cellulitis [Recovering/Resolving]
  - Femur fracture [Unknown]
  - Femur fracture [Not Recovered/Not Resolved]
  - Multiple fractures [Not Recovered/Not Resolved]
  - Knee arthroplasty [Unknown]
  - Atrial fibrillation [Unknown]
  - Joint dislocation [Unknown]
  - Joint injury [Unknown]
  - Gastrooesophageal reflux disease [Unknown]
  - Arteriosclerosis [Unknown]
  - Peripheral venous disease [Unknown]
  - Tendon injury [Unknown]

NARRATIVE: CASE EVENT DATE: 1996
